FAERS Safety Report 6803703-4 (Version None)
Quarter: 2010Q2

REPORT INFORMATION
  Report Type: 
  Country: None (occurrence: None)
  Receive Date: 20100628
  Receipt Date: 20100628
  Transmission Date: 20101027
  Serious: Yes (Hospitalization)
  Sender: FDA-Public Use
  Company Number: None

PATIENT
  Age: 59 Year
  Sex: Male
  Weight: 98.8 kg

DRUGS (3)
  1. CETUXIMAB [Suspect]
     Indication: SQUAMOUS CELL CARCINOMA
     Dosage: 250MG/M2 WEEKLY IV
     Route: 042
     Dates: start: 20100427, end: 20100609
  2. CISPLATIN [Suspect]
     Indication: SQUAMOUS CELL CARCINOMA
     Dosage: 30MG/M2 WEEKLY IV
     Route: 042
     Dates: start: 20100427, end: 20100609
  3. OXYCODONE HCL [Concomitant]

REACTIONS (3)
  - CONSTIPATION [None]
  - ORAL PAIN [None]
  - OROPHARYNGEAL PAIN [None]
